FAERS Safety Report 7248738-5 (Version None)
Quarter: 2011Q1

REPORT INFORMATION
  Report Type: 
  Country: None (occurrence: None)
  Receive Date: 20110128
  Receipt Date: 20110121
  Transmission Date: 20110831
  Serious: Yes (Other)
  Sender: FDA-Public Use
  Company Number: US-TEVA-263722USA

PATIENT
  Sex: Male

DRUGS (1)
  1. CLARAVIS [Suspect]
     Indication: ACNE
     Route: 048
     Dates: start: 20091201, end: 20100201

REACTIONS (3)
  - BLOOD URINE PRESENT [None]
  - SKIN EXFOLIATION [None]
  - PENILE HAEMORRHAGE [None]
